FAERS Safety Report 13664170 (Version 4)
Quarter: 2017Q3

REPORT INFORMATION
  Report Type: Report from Study
  Country: US (occurrence: BR)
  Receive Date: 20170619
  Receipt Date: 20170828
  Transmission Date: 20171127
  Serious: Yes (Life-Threatening, Other)
  Sender: FDA-Public Use
  Company Number: US-SUNOVION-2017SUN002591

PATIENT
  Sex: Female
  Weight: 30 kg

DRUGS (5)
  1. INDACATEROL AND GLYCOPYRROLATE [Suspect]
     Active Substance: GLYCOPYRROLATE\INDACATEROL MALEATE
     Indication: EMPHYSEMA
     Dosage: 1 DF (110 MCG+ 50MCG), QOD
     Route: 055
  2. BENEFIX [Concomitant]
     Active Substance: COAGULATION FACTOR IX RECOMBINANT HUMAN\ISOPROPYL ALCOHOL
  3. ALENIA [Concomitant]
     Active Substance: BUDESONIDE\FORMOTEROL FUMARATE
  4. INDACATEROL AND GLYCOPYRROLATE [Suspect]
     Active Substance: GLYCOPYRROLATE\INDACATEROL MALEATE
     Indication: ASTHMA
     Dosage: 1 DF (110 MCG+ 50MCG), QOD
     Route: 055
     Dates: start: 20170506
  5. INDACATEROL AND GLYCOPYRROLATE [Suspect]
     Active Substance: GLYCOPYRROLATE\INDACATEROL MALEATE
     Indication: CHRONIC OBSTRUCTIVE PULMONARY DISEASE

REACTIONS (23)
  - Pain in extremity [Unknown]
  - Fracture [Unknown]
  - Therapeutic response decreased [Unknown]
  - Dyspnoea [Not Recovered/Not Resolved]
  - Palpitations [Unknown]
  - Pulmonary vascular disorder [Unknown]
  - Visual impairment [Unknown]
  - Dyspnoea exertional [Unknown]
  - Inappropriate schedule of drug administration [Unknown]
  - Product use in unapproved indication [Unknown]
  - Feeling abnormal [Unknown]
  - Hypoxia [Unknown]
  - Gait disturbance [Unknown]
  - Weight decreased [Unknown]
  - Pyrexia [Unknown]
  - Bone pain [Unknown]
  - Cough [Unknown]
  - Skin discolouration [Unknown]
  - Arthralgia [Unknown]
  - Dysphonia [Unknown]
  - Malaise [Unknown]
  - Pulmonary pain [Unknown]
  - Fatigue [Unknown]
